FAERS Safety Report 25520171 (Version 4)
Quarter: 2025Q4

REPORT INFORMATION
  Report Type: Spontaneous
  Country: EU (occurrence: EU)
  Receive Date: 20250704
  Receipt Date: 20251017
  Transmission Date: 20260118
  Serious: Yes (Other)
  Sender: NOVARTIS
  Company Number: EU-002147023-NVSC2025DE056925

PATIENT
  Age: 78 Year
  Sex: Male

DRUGS (9)
  1. PLUVICTO [Suspect]
     Active Substance: LUTETIUM LU-177 VIPIVOTIDE TETRAXETAN
     Indication: Prostate cancer
     Dosage: 5.6 GBQ (CYCLE 1)
     Route: 042
     Dates: start: 20230830
  2. PLUVICTO [Suspect]
     Active Substance: LUTETIUM LU-177 VIPIVOTIDE TETRAXETAN
     Dosage: 6.8 GBQ (CYCLE 2)
     Route: 042
     Dates: start: 20231011
  3. PLUVICTO [Suspect]
     Active Substance: LUTETIUM LU-177 VIPIVOTIDE TETRAXETAN
     Dosage: 6.8 GBQ
     Route: 042
     Dates: start: 20231122
  4. PLUVICTO [Suspect]
     Active Substance: LUTETIUM LU-177 VIPIVOTIDE TETRAXETAN
     Dosage: 6.6 GBQ (CYCLE 5)
     Route: 042
     Dates: start: 20240118
  5. PLUVICTO [Suspect]
     Active Substance: LUTETIUM LU-177 VIPIVOTIDE TETRAXETAN
     Dosage: 6.5 GBQ (CYCLE 6)
     Route: 042
     Dates: start: 20240325
  6. PLUVICTO [Suspect]
     Active Substance: LUTETIUM LU-177 VIPIVOTIDE TETRAXETAN
     Dosage: 6.3 GBQ (CYCLE 7)
     Route: 042
     Dates: start: 20250428
  7. PLUVICTO [Suspect]
     Active Substance: LUTETIUM LU-177 VIPIVOTIDE TETRAXETAN
     Dosage: UNK
     Route: 042
     Dates: start: 20250611
  8. PLUVICTO [Suspect]
     Active Substance: LUTETIUM LU-177 VIPIVOTIDE TETRAXETAN
     Dosage: UNK
     Route: 065
     Dates: start: 20250728
  9. PLUVICTO [Suspect]
     Active Substance: LUTETIUM LU-177 VIPIVOTIDE TETRAXETAN
     Dosage: UNK
     Route: 065
     Dates: start: 20250915

REACTIONS (4)
  - Prostate cancer [Unknown]
  - Malignant neoplasm progression [Unknown]
  - Inappropriate schedule of product administration [Unknown]
  - Off label use [Unknown]

NARRATIVE: CASE EVENT DATE: 20250611
